FAERS Safety Report 8298953-7 (Version None)
Quarter: 2012Q2

REPORT INFORMATION
  Report Type: 
  Country: None (occurrence: None)
  Receive Date: 20120419
  Receipt Date: 20120417
  Transmission Date: 20120825
  Serious: Yes (Hospitalization)
  Sender: FDA-Public Use
  Company Number: PHHY2012AU028041

PATIENT
  Sex: Male

DRUGS (2)
  1. CLOZARIL [Suspect]
     Dosage: 250 MG, UNK
     Dates: start: 20110406
  2. CORTICOSTEROIDS [Concomitant]

REACTIONS (6)
  - PSORIASIS [None]
  - RASH [None]
  - GENERALISED ERYTHEMA [None]
  - PYREXIA [None]
  - SCAB [None]
  - SKIN INFECTION [None]
